FAERS Safety Report 11504301 (Version 3)
Quarter: 2016Q1

REPORT INFORMATION
  Report Type: Spontaneous
  Country: US (occurrence: US)
  Receive Date: 20150915
  Receipt Date: 20160226
  Transmission Date: 20160525
  Serious: Yes (Other)
  Sender: FDA-Public Use
  Company Number: US-AMGEN-USASP2015093575

PATIENT
  Age: 64 Year
  Sex: Male

DRUGS (2)
  1. NEUPOGEN [Suspect]
     Active Substance: FILGRASTIM
     Indication: AUTOIMMUNE NEUTROPENIA
     Dosage: 960 MG, TWICE A WEEK
     Route: 065
  2. NEUPOGEN [Suspect]
     Active Substance: FILGRASTIM
     Dosage: 480 MG, TWICE A WEEK
     Route: 065
     Dates: start: 201601

REACTIONS (12)
  - White blood cell count decreased [Not Recovered/Not Resolved]
  - Cardiovascular insufficiency [Unknown]
  - Dyspnoea [Unknown]
  - Infection [Unknown]
  - Fatigue [Unknown]
  - Mass [Unknown]
  - Neutrophil count decreased [Not Recovered/Not Resolved]
  - Stomatitis [Unknown]
  - Prostate cancer [Unknown]
  - Drug effect incomplete [Unknown]
  - Off label use [Unknown]
  - Pyrexia [Recovered/Resolved]

NARRATIVE: CASE EVENT DATE: 2016
